FAERS Safety Report 16409197 (Version 1)
Quarter: 2019Q2

REPORT INFORMATION
  Report Type: Spontaneous
  Country: RO (occurrence: RO)
  Receive Date: 20190610
  Receipt Date: 20190610
  Transmission Date: 20190711
  Serious: Yes (Death)
  Sender: FDA-Public Use
  Company Number: RO-PFIZER INC-2019247688

PATIENT
  Age: 51 Year
  Sex: Male
  Weight: 63 kg

DRUGS (1)
  1. SUTENT [Suspect]
     Active Substance: SUNITINIB MALATE
     Indication: METASTATIC RENAL CELL CARCINOMA
     Dosage: 37.5 MG, UNK
     Dates: start: 20161112

REACTIONS (1)
  - Death [Fatal]

NARRATIVE: CASE EVENT DATE: 20190417
